FAERS Safety Report 7247266-0 (Version None)
Quarter: 2011Q1

REPORT INFORMATION
  Report Type: 
  Country: None (occurrence: None)
  Receive Date: 20110127
  Receipt Date: 20110120
  Transmission Date: 20110831
  Serious: Yes (Death, Hospitalization)
  Sender: FDA-Public Use
  Company Number: A0814595A

PATIENT
  Age: 84 Year
  Sex: Female
  Weight: 64.1 kg

DRUGS (10)
  1. GLIPIZIDE [Concomitant]
  2. SYNTHROID [Concomitant]
  3. AVANDIA [Suspect]
     Dosage: 8MG PER DAY
     Route: 048
     Dates: end: 20031219
  4. XANAX [Concomitant]
  5. OCEAN [Concomitant]
  6. DESYREL [Concomitant]
  7. PLAVIX [Concomitant]
  8. KLOR-CON [Concomitant]
  9. FLEXERIL [Concomitant]
  10. SINEMET [Concomitant]

REACTIONS (5)
  - CARDIAC FAILURE CONGESTIVE [None]
  - COAGULOPATHY [None]
  - RENAL FAILURE [None]
  - ARTERIOSCLEROSIS CORONARY ARTERY [None]
  - CEREBRAL INFARCTION [None]
